FAERS Safety Report 19515162 (Version 1)
Quarter: 2021Q3

REPORT INFORMATION
  Report Type: Spontaneous
  Country: CA (occurrence: CA)
  Receive Date: 20210709
  Receipt Date: 20210709
  Transmission Date: 20211014
  Serious: Yes (Death, Hospitalization, Other)
  Sender: FDA-Public Use
  Company Number: CA-009507513-2107CAN001565

PATIENT
  Sex: Male

DRUGS (3)
  1. PIFELTRO [Suspect]
     Active Substance: DORAVIRINE
     Dosage: TWICE DAILY DOSING
     Route: 048
  2. DOLUTEGRAVIR [Suspect]
     Active Substance: DOLUTEGRAVIR
     Dosage: TWICE DAILY DOSING
  3. TRUVADA [Suspect]
     Active Substance: EMTRICITABINE\TENOFOVIR DISOPROXIL FUMARATE
     Dosage: TWICE DAILY DOSING

REACTIONS (9)
  - Adverse event [Unknown]
  - Hepatic failure [Unknown]
  - Therapeutic product effect incomplete [Unknown]
  - Depression [Unknown]
  - Weight increased [Unknown]
  - Product prescribing issue [Unknown]
  - Decreased appetite [Unknown]
  - Incorrect dose administered [Unknown]
  - Death [Fatal]
